FAERS Safety Report 13137439 (Version 1)
Quarter: 2017Q1

REPORT INFORMATION
  Report Type: Spontaneous
  Country: IT (occurrence: IT)
  Receive Date: 20170123
  Receipt Date: 20170123
  Transmission Date: 20170428
  Serious: Yes (Hospitalization)
  Sender: FDA-Public Use
  Company Number: IT-AUROBINDO-AUR-APL-2017-01226

PATIENT
  Age: 44 Year
  Sex: Female

DRUGS (2)
  1. OLANZAPINE. [Suspect]
     Active Substance: OLANZAPINE
     Indication: INTENTIONAL SELF-INJURY
     Dosage: TOTAL
     Route: 048
     Dates: start: 20161204, end: 20161204
  2. XANAX [Suspect]
     Active Substance: ALPRAZOLAM
     Indication: INTENTIONAL SELF-INJURY
     Dosage: TOTAL
     Route: 048
     Dates: start: 20161204, end: 20161204

REACTIONS (2)
  - Intentional self-injury [Unknown]
  - Sopor [Unknown]

NARRATIVE: CASE EVENT DATE: 20161204
